FAERS Safety Report 6825472-4 (Version None)
Quarter: 2010Q3

REPORT INFORMATION
  Report Type: 
  Country: None (occurrence: None)
  Receive Date: 20100708
  Receipt Date: 20061211
  Transmission Date: 20110219
  Serious: No
  Sender: FDA-Public Use
  Company Number: US-PFIZER INC-2006154312

PATIENT
  Sex: Female
  Weight: 68.04 kg

DRUGS (8)
  1. CHANTIX [Suspect]
     Indication: SMOKING CESSATION THERAPY
     Dates: start: 20061204
  2. SYNTHROID [Concomitant]
     Indication: THYROID CANCER
  3. ACIPHEX [Concomitant]
  4. MOBIC [Concomitant]
  5. LISINOPRIL [Concomitant]
  6. ACETYLSALICYLIC ACID [Concomitant]
  7. SPIRIVA [Concomitant]
     Indication: EMPHYSEMA
  8. ALBUTEROL [Concomitant]
     Indication: EMPHYSEMA
     Route: 055

REACTIONS (1)
  - NAUSEA [None]
